FAERS Safety Report 8888275 (Version 1)
Quarter: 2012Q4

REPORT INFORMATION
  Report Type: 
  Country: PR (occurrence: PR)
  Receive Date: 20121106
  Receipt Date: 20121106
  Transmission Date: 20130627
  Serious: Yes (Death, Other)
  Sender: FDA-Public Use
  Company Number: PR-BAYER-2012-104631

PATIENT

DRUGS (1)
  1. BETASERON [Suspect]

REACTIONS (1)
  - Death [Fatal]
